FAERS Safety Report 9034316 (Version 1)
Quarter: 2013Q1

REPORT INFORMATION
  Report Type: Spontaneous
  Country: US (occurrence: None)
  Receive Date: 20130114
  Receipt Date: 20130114
  Transmission Date: 20140127
  Serious: Yes (Hospitalization, Other)
  Sender: FDA-Public Use
  Company Number: 143711

PATIENT
  Age: 12 Year
  Sex: Male

DRUGS (1)
  1. CYTARABINE [Suspect]
     Indication: ACUTE LYMPHOCYTIC LEUKAEMIA
     Dates: start: 20121101

REACTIONS (3)
  - Febrile neutropenia [None]
  - Somnolence [None]
  - Confusional state [None]
